FAERS Safety Report 8872594 (Version 1)
Quarter: 2012Q4

REPORT INFORMATION
  Report Type: 
  Country: US (occurrence: US)
  Receive Date: 20121026
  Receipt Date: 20121026
  Transmission Date: 20130627
  Serious: No
  Sender: FDA-Public Use
  Company Number: US-AMGEN-USASP2012049505

PATIENT
  Age: 49 Year
  Sex: Female

DRUGS (3)
  1. ENBREL [Suspect]
     Indication: RHEUMATOID ARTHRITIS
     Dosage: 25 mg, 2 times/wk
     Dates: start: 20041226
  2. ENBREL [Suspect]
     Indication: FIBROMYALGIA
  3. TREXALL [Concomitant]
     Dosage: 1 mg, qwk
     Dates: start: 199403

REACTIONS (5)
  - Urinary incontinence [Recovered/Resolved]
  - Lymphoedema [Not Recovered/Not Resolved]
  - Therapeutic response decreased [Recovered/Resolved]
  - Staphylococcal infection [Not Recovered/Not Resolved]
  - Injection site pain [Recovered/Resolved]
